FAERS Safety Report 20601438 (Version 4)
Quarter: 2024Q1

REPORT INFORMATION
  Report Type: Spontaneous
  Country: ZA (occurrence: ZA)
  Receive Date: 20220316
  Receipt Date: 20240328
  Transmission Date: 20240410
  Serious: Yes (Death, Other)
  Sender: FDA-Public Use
  Company Number: ZA-CIPLA (EU) LIMITED-2022ZA01722

PATIENT

DRUGS (3)
  1. TENOFOVIR [Suspect]
     Active Substance: TENOFOVIR
     Indication: Antiretroviral therapy
     Dosage: UNK
     Route: 065
  2. EMTRICITABINE [Suspect]
     Active Substance: EMTRICITABINE
     Indication: Antiretroviral therapy
     Dosage: UNK
     Route: 065
  3. EFAVIRENZ [Suspect]
     Active Substance: EFAVIRENZ
     Indication: Antiretroviral therapy
     Dosage: UNK
     Route: 065

REACTIONS (6)
  - Molluscum contagiosum [Fatal]
  - Immune reconstitution inflammatory syndrome [Fatal]
  - Paradoxical drug reaction [Fatal]
  - Condition aggravated [Fatal]
  - Acute kidney injury [Recovered/Resolved]
  - Normocytic anaemia [Recovered/Resolved]
